FAERS Safety Report 8785495 (Version 1)
Quarter: 2012Q4

REPORT INFORMATION
  Report Type: 
  Country: US (occurrence: US)
  Receive Date: 20120914
  Receipt Date: 20120914
  Transmission Date: 20130627
  Serious: No
  Sender: FDA-Public Use
  Company Number: US-TEVA-358178USA

PATIENT
  Sex: Male
  Weight: 69.01 kg

DRUGS (1)
  1. AZILECT [Suspect]
     Indication: PARKINSON^S DISEASE
     Dosage: 1 Milligram Daily;
     Route: 055
     Dates: start: 201203

REACTIONS (2)
  - Arthralgia [Not Recovered/Not Resolved]
  - Loose body in joint [Not Recovered/Not Resolved]
